FAERS Safety Report 12802933 (Version 2)
Quarter: 2016Q4

REPORT INFORMATION
  Report Type: Report from Study
  Country: KR (occurrence: KR)
  Receive Date: 20161003
  Receipt Date: 20161028
  Transmission Date: 20170207
  Serious: Yes (Hospitalization)
  Sender: FDA-Public Use
  Company Number: KR-B.I. PHARMACEUTICALS,INC./RIDGEFIELD-2016-BI-63240BI

PATIENT
  Age: 68 Year
  Sex: Female
  Weight: 59 kg

DRUGS (4)
  1. BIBF 1120 [Suspect]
     Active Substance: NINTEDANIB
     Indication: IDIOPATHIC PULMONARY FIBROSIS
     Route: 048
     Dates: start: 20121220, end: 20160918
  2. TWINSTA [Concomitant]
     Indication: HYPERTENSION
     Dosage: DAILY DOSE (MULTIPLE TABLET)
     Route: 048
     Dates: start: 20120519
  3. GASLON [Concomitant]
     Active Substance: IRSOGLADINE MALEATE
     Indication: PROPHYLAXIS
     Route: 048
     Dates: start: 20150415
  4. NOLTEC [Concomitant]
     Indication: PROPHYLAXIS
     Route: 048
     Dates: start: 20150415

REACTIONS (1)
  - Arthritis [Recovered/Resolved]

NARRATIVE: CASE EVENT DATE: 20160919
